FAERS Safety Report 8495248-3 (Version None)
Quarter: 2012Q3

REPORT INFORMATION
  Report Type: 
  Country: None (occurrence: None)
  Receive Date: 20120709
  Receipt Date: 20120628
  Transmission Date: 20120928
  Serious: Yes (Hospitalization, Other)
  Sender: FDA-Public Use
  Company Number: US-BAYER-2012-032783

PATIENT
  Age: 36 Year
  Sex: Female

DRUGS (3)
  1. LEXAPRO [Concomitant]
     Dosage: 10 MG
     Dates: start: 20060315
  2. SULINDAC [Concomitant]
     Dosage: 200 MG, UNK
     Dates: start: 20060315
  3. YAZ [Suspect]
     Dosage: UNK
     Route: 048

REACTIONS (4)
  - INJURY [None]
  - PAIN [None]
  - DEEP VEIN THROMBOSIS [None]
  - THROMBOSIS [None]
